FAERS Safety Report 7610489-2 (Version None)
Quarter: 2011Q3

REPORT INFORMATION
  Report Type: 
  Country: None (occurrence: None)
  Receive Date: 20110715
  Receipt Date: 20091120
  Transmission Date: 20111222
  Serious: Yes (Other)
  Sender: FDA-Public Use
  Company Number: US-BAYER-200940886NA

PATIENT
  Age: 44 Year
  Sex: Male
  Weight: 84.807 kg

DRUGS (14)
  1. VANCOMYCIN [Concomitant]
     Dosage: 1.5 MG, ONCE
     Route: 042
     Dates: start: 20030407
  2. XIGRIS [Concomitant]
     Dosage: 20 ML/HR OVER 4 HRS
     Dates: start: 20030407, end: 20030408
  3. ZOSYN [Concomitant]
     Dosage: 3.375 MG, QID
     Route: 042
     Dates: start: 20030407, end: 20030407
  4. NAFCILLIN SODIUM [Concomitant]
     Dosage: 2 G, Q4HR
     Route: 042
     Dates: start: 20030407, end: 20030511
  5. LANTUS [Concomitant]
     Dosage: 15 U, ONCE
     Route: 042
     Dates: start: 20030407, end: 20030509
  6. PRILOSEC [Concomitant]
     Dosage: 20 MG, BID
     Route: 048
     Dates: start: 20030407, end: 20030508
  7. TRASYLOL [Suspect]
     Indication: PRODUCT USED FOR UNKNOWN INDICATION
     Dosage: 200 ML, LOADING DOSE AND NO INFUSION DOSE
     Route: 042
     Dates: start: 20030416, end: 20030416
  8. GENTAMYCIN SULFATE [Concomitant]
     Dosage: UNK
     Route: 042
     Dates: start: 20030407, end: 20030408
  9. VERSED [Concomitant]
     Dosage: 5 MG, UNK
     Route: 042
     Dates: start: 20030407, end: 20030407
  10. HEPARIN [Concomitant]
     Dosage: 5000 U, BID
     Route: 042
     Dates: start: 20030410, end: 20030425
  11. TRASYLOL [Suspect]
     Dosage: 200 ML CARDIOPULMONARY BYPASS PRIME
     Dates: start: 20030416, end: 20030416
  12. ATIVAN [Concomitant]
     Dosage: 2 MG, Q2HR
     Route: 042
     Dates: start: 20030407, end: 20030416
  13. LASIX [Concomitant]
     Dosage: 80 MG, ONCE
     Route: 042
     Dates: start: 20030407, end: 20030511
  14. ANCEF [Concomitant]
     Dosage: 2 G, UNK
     Route: 042
     Dates: start: 20030410, end: 20030511

REACTIONS (11)
  - MULTI-ORGAN FAILURE [None]
  - INJURY [None]
  - ANXIETY [None]
  - RENAL FAILURE [None]
  - RENAL INJURY [None]
  - UNEVALUABLE EVENT [None]
  - DEPRESSION [None]
  - PAIN [None]
  - FEAR [None]
  - ANHEDONIA [None]
  - DISABILITY [None]
